FAERS Safety Report 15419431 (Version 1)
Quarter: 2018Q3

REPORT INFORMATION
  Report Type: Report from Study
  Country: FR (occurrence: FR)
  Receive Date: 20180924
  Receipt Date: 20180924
  Transmission Date: 20181010
  Serious: Yes (Hospitalization)
  Sender: FDA-Public Use
  Company Number: FR-BAYER-2018-156937

PATIENT
  Age: 51 Year
  Sex: Female
  Weight: 79 kg

DRUGS (1)
  1. ADEMPAS [Suspect]
     Active Substance: RIOCIGUAT
     Dosage: UNK, TID
     Route: 048
     Dates: start: 20150504, end: 20160315

REACTIONS (3)
  - Haemoptysis [Recovered/Resolved]
  - Labelled drug-drug interaction medication error [None]
  - Bronchial artery embolisation [Recovered/Resolved]

NARRATIVE: CASE EVENT DATE: 20160312
